FAERS Safety Report 11167297 (Version 1)
Quarter: 2015Q2

REPORT INFORMATION
  Report Type: Spontaneous
  Country: US (occurrence: None)
  Receive Date: 20150515
  Receipt Date: 20150515
  Transmission Date: 20150821
  Serious: Yes (Hospitalization)
  Sender: FDA-Public Use
  Company Number: 2014005843

PATIENT
  Sex: Female

DRUGS (1)
  1. CIMZIA [Suspect]
     Active Substance: CERTOLIZUMAB PEGOL
     Indication: CROHN^S DISEASE
     Dosage: 400 MG, EV 4 WEEKS
     Dates: start: 20140424, end: 2014

REACTIONS (6)
  - Meningitis viral [None]
  - Weight decreased [None]
  - Fatigue [None]
  - Hepatic enzyme increased [None]
  - Headache [None]
  - Pain [None]

NARRATIVE: CASE EVENT DATE: 2014
